FAERS Safety Report 19992498 (Version 1)
Quarter: 2021Q4

REPORT INFORMATION
  Report Type: Spontaneous
  Country: US (occurrence: US)
  Receive Date: 20211025
  Receipt Date: 20211025
  Transmission Date: 20220303
  Serious: Yes (Hospitalization, Other)
  Sender: FDA-Public Use
  Company Number: US-ARBOR PHARMACEUTICALS, LLC-US-2021ARB001228

PATIENT
  Age: 29 Year
  Sex: Female

DRUGS (1)
  1. SOTALOL HYDROCHLORIDE [Suspect]
     Active Substance: SOTALOL HYDROCHLORIDE
     Indication: Product used for unknown indication
     Dosage: 4800 MG, UNK
     Route: 048

REACTIONS (5)
  - Suicide attempt [Unknown]
  - Intentional overdose [Unknown]
  - Toxicity to various agents [Recovering/Resolving]
  - Electrocardiogram QT prolonged [Unknown]
  - Ventricular tachycardia [Recovered/Resolved]
